FAERS Safety Report 9647565 (Version 2)
Quarter: 2013Q4

REPORT INFORMATION
  Report Type: Report from Study
  Country: US (occurrence: US)
  Receive Date: 20131028
  Receipt Date: 20131112
  Transmission Date: 20140711
  Serious: Yes (Hospitalization)
  Sender: FDA-Public Use
  Company Number: US-ROCHE-1295151

PATIENT
  Age: 24 Year
  Sex: Female

DRUGS (7)
  1. XOLAIR [Suspect]
     Indication: ASTHMA
     Route: 065
     Dates: start: 201012, end: 20130618
  2. SYMBICORT [Concomitant]
     Indication: ASTHMA
     Route: 050
     Dates: start: 20130310
  3. VENTOLIN [Concomitant]
     Indication: ASTHMA
     Dosage: 2 PUFFS  4 OR 5 TIMES AS REQUIRED
     Route: 050
     Dates: start: 20130310
  4. XOPENEX [Concomitant]
     Indication: ASTHMA
     Dosage: PER 3 ML/NEBULIZER PRN
     Route: 050
     Dates: start: 20130310
  5. PREDNISOLONE [Concomitant]
     Indication: ASTHMA
     Route: 048
     Dates: start: 20130310
  6. ZANTAC [Concomitant]
     Route: 048
     Dates: start: 20130310
  7. TRAMADOL [Concomitant]
     Dosage: 1-2 DAILY PRN
     Route: 048
     Dates: start: 20130310

REACTIONS (6)
  - Asthma [Unknown]
  - Blood immunoglobulin E increased [Unknown]
  - Obstructive airways disorder [Unknown]
  - Wheezing [Unknown]
  - Skin test positive [Unknown]
  - Radioallergosorbent test positive [Unknown]
